FAERS Safety Report 8319165-4 (Version None)
Quarter: 2012Q2

REPORT INFORMATION
  Report Type: 
  Country: None (occurrence: None)
  Receive Date: 20120427
  Receipt Date: 20120424
  Transmission Date: 20120825
  Serious: Yes (Other)
  Sender: FDA-Public Use
  Company Number: FR-SHIRE-SPV1-2012-00064

PATIENT
  Sex: Male
  Weight: 30 kg

DRUGS (2)
  1. ELAPRASE [Suspect]
     Indication: MUCOPOLYSACCHARIDOSIS II
     Dosage: 30 MG, 1X/WEEK
     Route: 041
     Dates: start: 20100101, end: 20120309
  2. ELAPRASE [Suspect]
     Dosage: 0.5 MG/KG, 1X/WEEK
     Route: 041
     Dates: start: 20070101, end: 20100101

REACTIONS (4)
  - INFUSION RELATED REACTION [None]
  - ANAPHYLACTOID REACTION [None]
  - OVERDOSE [None]
  - DRUG EFFECT DECREASED [None]
